FAERS Safety Report 22140323 (Version 2)
Quarter: 2024Q2

REPORT INFORMATION
  Report Type: Spontaneous
  Country: VN (occurrence: VN)
  Receive Date: 20230327
  Receipt Date: 20240624
  Transmission Date: 20240716
  Serious: Yes (Other)
  Sender: FDA-Public Use
  Company Number: VN-002147023-NVSC2023VN063923

PATIENT
  Age: 75 Year
  Sex: Female

DRUGS (3)
  1. RIBOCICLIB [Suspect]
     Active Substance: RIBOCICLIB
     Indication: Product used for unknown indication
     Dosage: 2 DOSAGE FORM, QD (400 MG) (FOR 3 WEEKS (OFF 1 WEEK) DURING 28-DAY CYCLE)
     Route: 048
     Dates: start: 202111
  2. RIBOCICLIB [Suspect]
     Active Substance: RIBOCICLIB
     Dosage: 400 MG, QD
     Route: 065
  3. ANASTROZOLE [Suspect]
     Active Substance: ANASTROZOLE
     Indication: Product used for unknown indication
     Dosage: 1 MG, QD (DAILY)
     Route: 048
     Dates: start: 202111

REACTIONS (4)
  - Neutropenia [Recovered/Resolved]
  - Gait disturbance [Unknown]
  - Fatigue [Recovered/Resolved]
  - Back pain [Unknown]
